FAERS Safety Report 5587730-3 (Version None)
Quarter: 2007Q4

REPORT INFORMATION
  Report Type: 
  Country: None (occurrence: None)
  Receive Date: 20071210
  Receipt Date: 20071113
  Transmission Date: 20080405
  Serious: Yes (Other)
  Sender: FDA-Public Use
  Company Number: SPV1-2007-01389

PATIENT
  Sex: Female

DRUGS (2)
  1. ADDERALL 10 [Suspect]
     Indication: ATTENTION DEFICIT/HYPERACTIVITY DISORDER
     Dosage: 25 MG, ORAL
     Route: 048
     Dates: end: 20071109
  2. CIPRO (CYPROHEPTADINE HYDROCHLORIDE) [Concomitant]

REACTIONS (11)
  - ALOPECIA [None]
  - BLOOD PRESSURE INCREASED [None]
  - HEART RATE ABNORMAL [None]
  - MALAISE [None]
  - NERVOUSNESS [None]
  - PHARMACEUTICAL PRODUCT COMPLAINT [None]
  - RASH PUSTULAR [None]
  - SPEECH DISORDER [None]
  - TREMOR [None]
  - URINARY TRACT INFECTION [None]
  - WEIGHT DECREASED [None]
